FAERS Safety Report 15284953 (Version 1)
Quarter: 2018Q4

REPORT INFORMATION
  Report Type: Spontaneous
  Country: DE (occurrence: DE)
  Receive Date: 20180816
  Receipt Date: 20180816
  Transmission Date: 20190204
  Serious: Yes (Death, Hospitalization, Other)
  Sender: FDA-Public Use
  Company Number: DE-TEVA-2018-DE-940321

PATIENT
  Age: 78 Year
  Sex: Male

DRUGS (28)
  1. QUETIAPINE FUMARATE. [Suspect]
     Active Substance: QUETIAPINE FUMARATE
     Dosage: 150 MILLIGRAM DAILY;
     Route: 048
     Dates: start: 2016
  2. PAROXETINE. [Suspect]
     Active Substance: PAROXETINE
     Indication: AGITATION
  3. DEXTROMETHORPHAN HYDROBROMIDE. [Suspect]
     Active Substance: DEXTROMETHORPHAN HYDROBROMIDE
     Indication: DELIRIUM
     Dosage: 24 MILLIGRAM DAILY;
     Route: 065
     Dates: start: 2017
  4. DEXTROMETHORPHAN HYDROBROMIDE. [Suspect]
     Active Substance: DEXTROMETHORPHAN HYDROBROMIDE
     Indication: AGITATION
     Dosage: DOSE INCREASED, TWO DIVIDED DOSES;
     Route: 065
     Dates: start: 2017
  5. AMPICILLIN W/SULBACTAM [Suspect]
     Active Substance: AMPICILLIN SODIUM\SULBACTAM SODIUM
     Indication: PNEUMONIA
     Route: 065
     Dates: start: 201601
  6. DONEPEZIL. [Concomitant]
     Active Substance: DONEPEZIL
     Indication: DELIRIUM
  7. QUETIAPINE FUMARATE. [Suspect]
     Active Substance: QUETIAPINE FUMARATE
     Indication: DEMENTIA WITH LEWY BODIES
     Dosage: 150 MILLIGRAM DAILY;
     Route: 048
     Dates: start: 2016
  8. PAROXETINE. [Suspect]
     Active Substance: PAROXETINE
     Indication: AGGRESSION
     Dosage: 10 MILLIGRAM DAILY;
     Route: 065
     Dates: start: 2017
  9. LORAZEPAM. [Suspect]
     Active Substance: LORAZEPAM
     Indication: DELIRIUM
     Route: 065
     Dates: start: 2016
  10. RIVASTIGMINE. [Concomitant]
     Active Substance: RIVASTIGMINE
     Indication: AGGRESSION
     Route: 065
  11. CARBAMAZEPINE. [Concomitant]
     Active Substance: CARBAMAZEPINE
     Indication: PRODUCT USED FOR UNKNOWN INDICATION
     Route: 065
  12. QUETIAPINE FUMARATE. [Suspect]
     Active Substance: QUETIAPINE FUMARATE
     Route: 065
     Dates: start: 2016
  13. FLUPENTIXOL-DIHYDROCHLORIDE-GENERIC(FLUPENTIXOL-DIHYDROCHLORIDE) [Suspect]
     Active Substance: FLUPENTIXOL DIHYDROCHLORIDE
     Indication: PNEUMONIA
     Route: 048
  14. FLUPENTIXOL-DIHYDROCHLORIDE-GENERIC(FLUPENTIXOL-DIHYDROCHLORIDE) [Suspect]
     Active Substance: FLUPENTIXOL DIHYDROCHLORIDE
     Dosage: 20 MILLIGRAM DAILY;
     Route: 048
  15. DRONABINOL. [Suspect]
     Active Substance: DRONABINOL
     Dosage: 2.5 MILLIGRAM DAILY;
     Route: 065
     Dates: start: 2016
  16. FORMOTEROL [Suspect]
     Active Substance: FORMOTEROL
     Indication: PNEUMONIA
     Dosage: 20 MILLIGRAM DAILY;
     Route: 065
     Dates: start: 201601
  17. LORAZEPAM. [Suspect]
     Active Substance: LORAZEPAM
     Indication: DEMENTIA WITH LEWY BODIES
  18. FLUPENTIXOL-DIHYDROCHLORIDE-GENERIC(FLUPENTIXOL-DIHYDROCHLORIDE) [Suspect]
     Active Substance: FLUPENTIXOL DIHYDROCHLORIDE
     Dosage: AS HIGH AS TOLERATED
     Route: 065
  19. RIVASTIGMINE. [Concomitant]
     Active Substance: RIVASTIGMINE
     Indication: DEMENTIA WITH LEWY BODIES
  20. DONEPEZIL. [Concomitant]
     Active Substance: DONEPEZIL
     Indication: AGGRESSION
     Route: 065
  21. QUETIAPINE FUMARATE. [Suspect]
     Active Substance: QUETIAPINE FUMARATE
     Indication: DELIRIUM
     Route: 048
     Dates: start: 2016
  22. DRONABINOL. [Suspect]
     Active Substance: DRONABINOL
     Indication: DELIRIUM
     Route: 065
     Dates: start: 2016
  23. DEXTROMETHORPHAN HYDROBROMIDE. [Suspect]
     Active Substance: DEXTROMETHORPHAN HYDROBROMIDE
     Indication: AGGRESSION
  24. RIVASTIGMINE. [Concomitant]
     Active Substance: RIVASTIGMINE
     Indication: DELIRIUM
  25. QUETIAPINE FUMARATE. [Suspect]
     Active Substance: QUETIAPINE FUMARATE
     Dosage: 100 MILLIGRAM DAILY;
     Route: 048
     Dates: start: 2017
  26. PAROXETINE. [Suspect]
     Active Substance: PAROXETINE
     Indication: DELIRIUM
  27. DRONABINOL. [Suspect]
     Active Substance: DRONABINOL
     Indication: AGGRESSION
     Dosage: 15 MILLIGRAM DAILY;
     Route: 065
     Dates: start: 2016
  28. SPIRIVA [Suspect]
     Active Substance: TIOTROPIUM BROMIDE MONOHYDRATE
     Indication: PNEUMONIA
     Route: 065
     Dates: start: 201601

REACTIONS (9)
  - Off label use [Fatal]
  - Product use in unapproved indication [Fatal]
  - Condition aggravated [Fatal]
  - Hangover [Fatal]
  - Completed suicide [Fatal]
  - Fatigue [Fatal]
  - Paranoia [Fatal]
  - Aggression [Fatal]
  - Sleep disorder [Fatal]

NARRATIVE: CASE EVENT DATE: 2017
